FAERS Safety Report 9732736 (Version 2)
Quarter: 2014Q1

REPORT INFORMATION
  Report Type: Spontaneous
  Country: US (occurrence: US)
  Receive Date: 20131204
  Receipt Date: 20140313
  Transmission Date: 20141002
  Serious: Yes (Other)
  Sender: FDA-Public Use
  Company Number: US-GLAXOSMITHKLINE-A1051655A

PATIENT
  Age: 86 Year
  Sex: Male

DRUGS (3)
  1. MEPRON [Suspect]
     Indication: BABESIOSIS
     Dosage: 5ML TWICE PER DAY
     Route: 048
     Dates: start: 201307
  2. TIKOSYN [Suspect]
     Dates: start: 201208, end: 201311
  3. METOPROLOL [Concomitant]

REACTIONS (4)
  - Cognitive disorder [Recovering/Resolving]
  - Confusional state [Recovering/Resolving]
  - Nausea [Recovered/Resolved]
  - Urticaria [Recovering/Resolving]
